FAERS Safety Report 7373727-X (Version None)
Quarter: 2011Q1

REPORT INFORMATION
  Report Type: 
  Country: None (occurrence: None)
  Receive Date: 20110325
  Receipt Date: 20110311
  Transmission Date: 20110831
  Serious: Yes (Other)
  Sender: FDA-Public Use
  Company Number: JP-JNJFOC-20110308171

PATIENT
  Age: 4 Year

DRUGS (7)
  1. LIORESAL [Suspect]
     Indication: PRODUCT USED FOR UNKNOWN INDICATION
     Route: 065
  2. DEPAKENE [Suspect]
     Indication: EPILEPSY
     Route: 065
  3. SEDIEL [Concomitant]
     Indication: SEDATION
     Route: 065
  4. TEGRETOL [Suspect]
     Indication: EPILEPSY
     Route: 065
  5. PHENOBAL [Concomitant]
     Indication: EPILEPSY
     Route: 065
  6. TOPIRAMATE [Suspect]
     Indication: EPILEPSY
     Route: 048
  7. DANTRIUM [Suspect]
     Indication: PRODUCT USED FOR UNKNOWN INDICATION
     Route: 065

REACTIONS (1)
  - FRACTURE [None]
